FAERS Safety Report 5460188-0 (Version None)
Quarter: 2007Q3

REPORT INFORMATION
  Report Type: 
  Country: None (occurrence: None)
  Receive Date: 20070919
  Receipt Date: 20070525
  Transmission Date: 20080115
  Serious: Yes (Hospitalization)
  Sender: FDA-Public Use
  Company Number: US-ASTRAZENECA-2007UW13049

PATIENT
  Age: 46 Year
  Sex: Male
  Weight: 79.8 kg

DRUGS (6)
  1. SEROQUEL [Suspect]
     Indication: SCHIZOPHRENIA
     Route: 048
     Dates: end: 20070524
  2. SEROQUEL [Suspect]
     Route: 048
     Dates: start: 20070525
  3. THIAMINE [Concomitant]
  4. FOLATE [Concomitant]
  5. LORAZEPAM [Concomitant]
  6. PREVACID [Concomitant]

REACTIONS (2)
  - DYSPEPSIA [None]
  - PSYCHOTIC DISORDER [None]
